FAERS Safety Report 4594525-6 (Version None)
Quarter: 2005Q1

REPORT INFORMATION
  Report Type: 
  Country: None (occurrence: None)
  Receive Date: 20050301
  Receipt Date: 20040422
  Transmission Date: 20050727
  Serious: No
  Sender: FDA-Public Use
  Company Number: US-GLAXOSMITHKLINE-A0508081A

PATIENT
  Age: 39 Year
  Sex: Male

DRUGS (3)
  1. VALTREX [Suspect]
     Dosage: 500MG PER DAY
     Route: 048
  2. PEPCID AC [Concomitant]
  3. PROTONIX [Concomitant]

REACTIONS (1)
  - URETHRAL DISORDER [None]
